FAERS Safety Report 20643670 (Version 1)
Quarter: 2022Q1

REPORT INFORMATION
  Report Type: Spontaneous
  Country: US (occurrence: US)
  Receive Date: 20220328
  Receipt Date: 20220328
  Transmission Date: 20220423
  Serious: No
  Sender: FDA-Public Use
  Company Number: US-009507513-2203USA002613

PATIENT
  Age: 77 Year
  Sex: Male

DRUGS (4)
  1. KEYTRUDA [Suspect]
     Active Substance: PEMBROLIZUMAB
     Indication: Gastrointestinal carcinoma
     Dosage: UNK
     Route: 042
     Dates: start: 2022
  2. ENALAPRIL [Concomitant]
     Active Substance: ENALAPRIL
     Dosage: 5 MILLIGRAM
  3. PREVACID [Concomitant]
     Active Substance: LANSOPRAZOLE
     Dosage: TWICE A DAY
  4. FAMOTIDINE [Concomitant]
     Active Substance: FAMOTIDINE
     Dosage: ONCE A DAY

REACTIONS (6)
  - Rash [Recovered/Resolved]
  - Abdominal pain upper [Not Recovered/Not Resolved]
  - Abdominal discomfort [Not Recovered/Not Resolved]
  - Nasopharyngitis [Not Recovered/Not Resolved]
  - Insomnia [Not Recovered/Not Resolved]
  - Product use in unapproved indication [Unknown]

NARRATIVE: CASE EVENT DATE: 20220101
